FAERS Safety Report 16322635 (Version 1)
Quarter: 2019Q2

REPORT INFORMATION
  Report Type: Spontaneous
  Country: US (occurrence: US)
  Receive Date: 20190516
  Receipt Date: 20190516
  Transmission Date: 20190711
  Serious: No
  Sender: FDA-Public Use
  Company Number: US-GILEAD-2019-0407640

PATIENT
  Age: 43 Year
  Sex: Male

DRUGS (3)
  1. EPCLUSA [Suspect]
     Active Substance: SOFOSBUVIR\VELPATASVIR
     Indication: CHRONIC HEPATITIS C
     Dosage: 1 DOSAGE FORM
     Route: 048
     Dates: start: 201904
  2. GABAPENTIN. [Concomitant]
     Active Substance: GABAPENTIN
  3. METHADONE HCL [Concomitant]
     Active Substance: METHADONE HYDROCHLORIDE

REACTIONS (1)
  - Abdominal pain upper [Recovered/Resolved]
